FAERS Safety Report 20344644 (Version 1)
Quarter: 2022Q1

REPORT INFORMATION
  Report Type: Report from Study
  Country: AU (occurrence: AU)
  Receive Date: 20220118
  Receipt Date: 20220118
  Transmission Date: 20220423
  Serious: Yes (Hospitalization)
  Sender: FDA-Public Use
  Company Number: AU-ABBVIE-22K-008-4219238-00

PATIENT
  Age: 73 Year
  Sex: Female

DRUGS (2)
  1. CARBIDOPA\LEVODOPA [Suspect]
     Active Substance: CARBIDOPA\LEVODOPA
     Indication: Parkinson^s disease
     Dosage: 16 HRS DUODOPA AS 100 ML GEL CASSETTE.
     Route: 050
     Dates: start: 20151208
  2. CARBIDOPA\LEVODOPA [Suspect]
     Active Substance: CARBIDOPA\LEVODOPA

REACTIONS (4)
  - Syncope [Unknown]
  - Balance disorder [Unknown]
  - Duodenal ulcer [Unknown]
  - COVID-19 [Unknown]

NARRATIVE: CASE EVENT DATE: 20211230
